FAERS Safety Report 21676364 (Version 1)
Quarter: 2022Q4

REPORT INFORMATION
  Report Type: Spontaneous
  Country: US (occurrence: None)
  Receive Date: 20221202
  Receipt Date: 20221202
  Transmission Date: 20230113
  Serious: Yes (Other)
  Sender: FDA-Public Use
  Company Number: None

PATIENT
  Age: 55 Year
  Sex: Female

DRUGS (1)
  1. RINVOQ [Suspect]
     Active Substance: UPADACITINIB
     Indication: Rheumatoid arthritis
     Dosage: FREQUENCY : DAILY;?
     Route: 048
     Dates: start: 20221026, end: 20221118

REACTIONS (9)
  - Oral mucosal blistering [None]
  - Lip blister [None]
  - Lip swelling [None]
  - Nasal congestion [None]
  - Feeding disorder [None]
  - Cough [None]
  - Syncope [None]
  - Rash [None]
  - Drug hypersensitivity [None]
